FAERS Safety Report 20505074 (Version 2)
Quarter: 2022Q1

REPORT INFORMATION
  Report Type: Spontaneous
  Country: IR (occurrence: IR)
  Receive Date: 20220223
  Receipt Date: 20220325
  Transmission Date: 20220423
  Serious: Yes (Death)
  Sender: FDA-Public Use
  Company Number: IR-BAUSCH-BL-2022-004428

PATIENT
  Age: 57 Year
  Sex: Male

DRUGS (1)
  1. METFORMIN [Suspect]
     Active Substance: METFORMIN HYDROCHLORIDE
     Indication: Product used for unknown indication
     Dosage: OVER 100 G OF METFORMIN
     Route: 048

REACTIONS (7)
  - Cardiac arrest [Fatal]
  - Metabolic acidosis [Fatal]
  - Completed suicide [Fatal]
  - Toxicity to various agents [Fatal]
  - Hypotension [Fatal]
  - Lactic acidosis [Fatal]
  - Intentional overdose [Fatal]
